FAERS Safety Report 5660802-0 (Version None)
Quarter: 2008Q1

REPORT INFORMATION
  Report Type: 
  Country: None (occurrence: None)
  Receive Date: 20080311
  Receipt Date: 20080305
  Transmission Date: 20080703
  Serious: Yes (Hospitalization, Other)
  Sender: FDA-Public Use
  Company Number: BE-BAYER-200813869GPV

PATIENT
  Age: 88 Year
  Sex: Female

DRUGS (3)
  1. AVELOX [Suspect]
     Indication: PNEUMONIA
     Route: 042
     Dates: start: 20080114
  2. AVELOX [Suspect]
     Route: 048
     Dates: end: 20080125
  3. AUGMENTIN '125' [Concomitant]
     Indication: PNEUMONIA
     Route: 065
     Dates: start: 20080106, end: 20080114

REACTIONS (3)
  - GENERAL PHYSICAL HEALTH DETERIORATION [None]
  - HEPATIC FUNCTION ABNORMAL [None]
  - JAUNDICE [None]
